FAERS Safety Report 25190870 (Version 2)
Quarter: 2025Q2

REPORT INFORMATION
  Report Type: Spontaneous
  Country: US (occurrence: US)
  Receive Date: 20250411
  Receipt Date: 20250519
  Transmission Date: 20250716
  Serious: No
  Sender: NIVAGEN PHARMACEUTICALS INC
  Company Number: US-NPI-000111

PATIENT
  Sex: Female

DRUGS (5)
  1. Porcelana [Concomitant]
     Indication: Product used for unknown indication
     Route: 065
  2. Ledawn [Concomitant]
     Indication: Rhinorrhoea
     Route: 065
  3. Ledawn [Concomitant]
     Indication: Cough
     Route: 065
  4. Ledawn [Concomitant]
     Indication: Hypersensitivity
     Route: 065
  5. HYDROQUINONE [Suspect]
     Active Substance: HYDROQUINONE
     Indication: Sunburn
     Dosage: 4 MG DOSE TWICE DAILY (ONCE IN A DAY AND NIGHT)
     Route: 061

REACTIONS (1)
  - Drug ineffective [Unknown]
